FAERS Safety Report 25282185 (Version 1)
Quarter: 2025Q2

REPORT INFORMATION
  Report Type: Spontaneous
  Country: US (occurrence: US)
  Receive Date: 20250508
  Receipt Date: 20250508
  Transmission Date: 20250716
  Serious: Yes (Other)
  Sender: Apozeal Pharmaceuticals
  Company Number: US-Apozeal Pharmaceuticals-2176334

PATIENT

DRUGS (3)
  1. HYDROXYZINE HYDROCHLORIDE [Suspect]
     Active Substance: HYDROXYZINE HYDROCHLORIDE
     Indication: Insomnia
  2. GABAPENTIN [Suspect]
     Active Substance: GABAPENTIN
  3. AMBIEN [Suspect]
     Active Substance: ZOLPIDEM TARTRATE

REACTIONS (5)
  - Neuropathy peripheral [Unknown]
  - Product use in unapproved indication [Unknown]
  - Feeling abnormal [Unknown]
  - Balance disorder [Unknown]
  - Tinnitus [Unknown]
